FAERS Safety Report 11717023 (Version 1)
Quarter: 2015Q4

REPORT INFORMATION
  Report Type: Report from Study
  Country: US (occurrence: US)
  Receive Date: 20151109
  Receipt Date: 20151109
  Transmission Date: 20160304
  Serious: No
  Sender: FDA-Public Use
  Company Number: GXBR2015US002379

PATIENT
  Age: 9 Year
  Sex: Female

DRUGS (1)
  1. OMNITROPE [Suspect]
     Active Substance: SOMATROPIN
     Indication: DWARFISM
     Dosage: 0.8 MG, QD
     Route: 065
     Dates: start: 201510

REACTIONS (5)
  - Injection site pain [Not Recovered/Not Resolved]
  - Anxiety [Unknown]
  - Injection site bruising [Not Recovered/Not Resolved]
  - Hyperventilation [Unknown]
  - Injection site haemorrhage [Not Recovered/Not Resolved]

NARRATIVE: CASE EVENT DATE: 20151021
